FAERS Safety Report 7978979-0 (Version None)
Quarter: 2011Q4

REPORT INFORMATION
  Report Type: 
  Country: None (occurrence: None)
  Receive Date: 20111202
  Receipt Date: 20111116
  Transmission Date: 20120403
  Serious: Yes (Hospitalization, Other)
  Sender: FDA-Public Use
  Company Number: DSA_47378_2011

PATIENT
  Sex: Female
  Weight: 63.5036 kg

DRUGS (26)
  1. DIOVAN [Suspect]
     Indication: PRODUCT USED FOR UNKNOWN INDICATION
     Dosage: DF
  2. BACTRIM [Suspect]
     Indication: PRODUCT USED FOR UNKNOWN INDICATION
     Dosage: DF
  3. LISINOPRIL [Suspect]
     Indication: PRODUCT USED FOR UNKNOWN INDICATION
     Dosage: DF
  4. HYDROCHLOROTHIAZIDE [Suspect]
     Indication: PRODUCT USED FOR UNKNOWN INDICATION
     Dosage: DF
  5. BYSTOLIC [Suspect]
     Indication: PRODUCT USED FOR UNKNOWN INDICATION
     Dosage: DF
  6. ATACAND [Suspect]
     Indication: PRODUCT USED FOR UNKNOWN INDICATION
     Dosage: 32 MG QD ORAL, 16 MG QD ORAL
     Route: 048
     Dates: start: 19960101
  7. LOSARTAN POTASSIUM [Suspect]
     Indication: PRODUCT USED FOR UNKNOWN INDICATION
     Dosage: DF
  8. REGLAN [Suspect]
     Indication: PRODUCT USED FOR UNKNOWN INDICATION
     Dosage: DF
  9. XANAX [Suspect]
     Indication: PRODUCT USED FOR UNKNOWN INDICATION
     Dosage: 0.5 DOSAGE FORM DAILY
  10. NORVASC [Suspect]
     Indication: HYPERTENSION
     Dosage: 2.5 MG QD ORAL, 5 MG QD ORAL, 2.5 MG ORAL, HALF OF A 5 MG TABLET ORAL, HALF OF A 5 MG TABLET ORAL, 5
     Route: 048
     Dates: start: 20100101
  11. NORVASC [Suspect]
     Indication: HYPERTENSION
     Dosage: 2.5 MG QD ORAL, 5 MG QD ORAL, 2.5 MG ORAL, HALF OF A 5 MG TABLET ORAL, HALF OF A 5 MG TABLET ORAL, 5
     Route: 048
     Dates: start: 19950101
  12. NORVASC [Suspect]
     Indication: HYPERTENSION
     Dosage: 2.5 MG QD ORAL, 5 MG QD ORAL, 2.5 MG ORAL, HALF OF A 5 MG TABLET ORAL, HALF OF A 5 MG TABLET ORAL, 5
     Route: 048
     Dates: start: 20100722
  13. NORVASC [Suspect]
     Indication: HYPERTENSION
     Dosage: 2.5 MG QD ORAL, 5 MG QD ORAL, 2.5 MG ORAL, HALF OF A 5 MG TABLET ORAL, HALF OF A 5 MG TABLET ORAL, 5
     Route: 048
     Dates: start: 19970101
  14. NORVASC [Suspect]
     Indication: HYPERTENSION
     Dosage: 2.5 MG QD ORAL, 5 MG QD ORAL, 2.5 MG ORAL, HALF OF A 5 MG TABLET ORAL, HALF OF A 5 MG TABLET ORAL, 5
     Route: 048
     Dates: start: 20100719, end: 20110721
  15. MACROBID [Suspect]
     Indication: PRODUCT USED FOR UNKNOWN INDICATION
     Dosage: DF
  16. BENICAR [Suspect]
     Indication: HYPERTENSION
     Dosage: DF
     Route: 048
     Dates: end: 20070101
  17. CLONIDINE [Concomitant]
  18. AVAPRO [Suspect]
     Indication: HYPERTENSION
     Dosage: DF
  19. CIPROFLOXACIN HYDROCHLORIDE [Suspect]
     Indication: PRODUCT USED FOR UNKNOWN INDICATION
     Dosage: DF
  20. LIDOCAINE HCL [Suspect]
     Indication: PARONYCHIA
     Dosage: DF
     Dates: start: 20100513, end: 20100513
  21. LEVOTHYROXINE SODIUM [Concomitant]
  22. CARDIZEM [Suspect]
     Indication: PRODUCT USED FOR UNKNOWN INDICATION
     Dosage: DF
  23. FUROSEMIDE [Suspect]
     Indication: PRODUCT USED FOR UNKNOWN INDICATION
     Dosage: DF
  24. LEVAQUIN [Suspect]
     Indication: PRODUCT USED FOR UNKNOWN INDICATION
     Dosage: DF
  25. DEPAKOTE [Suspect]
     Indication: CONVULSION
     Dosage: DF
     Dates: start: 19960101
  26. DILANTIN [Suspect]
     Indication: PRODUCT USED FOR UNKNOWN INDICATION
     Dosage: DF
     Dates: start: 19960101

REACTIONS (29)
  - ABDOMINAL PAIN [None]
  - ANAEMIA [None]
  - HYPOAESTHESIA [None]
  - CYSTITIS [None]
  - URINARY INCONTINENCE [None]
  - BLOOD TRIGLYCERIDES INCREASED [None]
  - PLATELET COUNT DECREASED [None]
  - FULL BLOOD COUNT DECREASED [None]
  - INSOMNIA [None]
  - SPLENOMEGALY [None]
  - BURNING SENSATION [None]
  - ARTERIOGRAM CORONARY ABNORMAL [None]
  - INGROWING NAIL [None]
  - MICTURITION FREQUENCY DECREASED [None]
  - ERYTHEMA [None]
  - HEADACHE [None]
  - WRONG TECHNIQUE IN DRUG USAGE PROCESS [None]
  - CARBUNCLE [None]
  - LUNG NEOPLASM [None]
  - LOSS OF CONSCIOUSNESS [None]
  - DIZZINESS [None]
  - GALLBLADDER DISORDER [None]
  - GASTRIC DISORDER [None]
  - PALPITATIONS [None]
  - WEIGHT DECREASED [None]
  - KIDNEY INFECTION [None]
  - BLOOD PRESSURE INADEQUATELY CONTROLLED [None]
  - BLOOD COUNT ABNORMAL [None]
  - ARTERIAL OCCLUSIVE DISEASE [None]
